FAERS Safety Report 8699688 (Version 2)
Quarter: 2014Q4

REPORT INFORMATION
  Report Type: Spontaneous
  Country: US (occurrence: US)
  Receive Date: 20120802
  Receipt Date: 20141120
  Transmission Date: 20150529
  Serious: Yes (Other)
  Sender: FDA-Public Use
  Company Number: US-GLAXOSMITHKLINE-A0986979A

PATIENT
  Sex: Female

DRUGS (4)
  1. SPIRIVA [Concomitant]
     Active Substance: TIOTROPIUM BROMIDE MONOHYDRATE
  2. ADVAIR DISKUS [Suspect]
     Active Substance: FLUTICASONE PROPIONATE\SALMETEROL XINAFOATE
     Indication: CHRONIC OBSTRUCTIVE PULMONARY DISEASE
     Dosage: 1 PUFF(S), 1D
     Dates: start: 20110111, end: 20120701
  3. PROAIR HFA [Concomitant]
     Active Substance: ALBUTEROL SULFATE
     Route: 055
  4. ADVAIR DISKUS [Suspect]
     Active Substance: FLUTICASONE PROPIONATE\SALMETEROL XINAFOATE
     Indication: PNEUMONIA

REACTIONS (30)
  - Hypoaesthesia [Unknown]
  - Memory impairment [Unknown]
  - Gait disturbance [Unknown]
  - Dysuria [Unknown]
  - Vomiting [Unknown]
  - Device failure [Recovered/Resolved]
  - Cerebrovascular accident [Unknown]
  - Headache [Unknown]
  - Muscle spasms [Unknown]
  - Nausea [Unknown]
  - Painful defaecation [Unknown]
  - Disturbance in attention [Unknown]
  - Speech disorder [Unknown]
  - Mouth swelling [Recovered/Resolved]
  - Anosmia [Unknown]
  - Pain [Unknown]
  - Disability [Unknown]
  - Eye haemorrhage [Not Recovered/Not Resolved]
  - Ageusia [Unknown]
  - Dizziness [Unknown]
  - Activities of daily living impaired [Unknown]
  - Oropharyngeal pain [Unknown]
  - Abdominal pain [Unknown]
  - Deafness [Unknown]
  - Pneumonia [Unknown]
  - Dyspnoea [Unknown]
  - Loose tooth [Recovered/Resolved]
  - Pharyngeal oedema [Recovered/Resolved]
  - Asthma [Unknown]
  - Diarrhoea [Unknown]
